FAERS Safety Report 5424482-1 (Version None)
Quarter: 2007Q3

REPORT INFORMATION
  Report Type: 
  Country: None (occurrence: None)
  Receive Date: 20070822
  Receipt Date: 20070815
  Transmission Date: 20080115
  Serious: Yes (Death, Hospitalization)
  Sender: FDA-Public Use
  Company Number: 200707AGG00666

PATIENT
  Age: 80 Year
  Sex: Female

DRUGS (12)
  1. AGGRASTAT [Suspect]
     Indication: ANGINA UNSTABLE
     Dosage: INTRAVENOUS BOLUS, INTRAVENOUS DRIP
     Route: 040
     Dates: start: 20061126, end: 20061126
  2. AGGRASTAT [Suspect]
     Indication: ANGINA UNSTABLE
     Dosage: INTRAVENOUS BOLUS, INTRAVENOUS DRIP
     Route: 040
     Dates: start: 20061126, end: 20061128
  3. ASPIRIN [Concomitant]
  4. CLOPIDOGREL BISULFATE [Concomitant]
  5. INSULIN [Concomitant]
  6. HEPARIN [Concomitant]
  7. ATORVASTATIN CALCIUM [Concomitant]
  8. LASIX [Concomitant]
  9. LOSEC I.V. [Concomitant]
  10. TAZOCIN [Concomitant]
  11. BURINEX [Concomitant]
  12. DYNATRA [Concomitant]

REACTIONS (1)
  - MYOCARDIAL ISCHAEMIA [None]
